FAERS Safety Report 4379618-0 (Version None)
Quarter: 2004Q2

REPORT INFORMATION
  Report Type: 
  Country: None (occurrence: None)
  Receive Date: 20040614
  Receipt Date: 20040601
  Transmission Date: 20050107
  Serious: Yes (Other)
  Sender: FDA-Public Use
  Company Number: US-JNJFOC-20040601311

PATIENT
  Age: 45 Year
  Sex: Male
  Weight: 122.4712 kg

DRUGS (2)
  1. TESTODERM [Suspect]
     Dosage: 6 MG, TRANSDERMAL
     Route: 062
     Dates: start: 19940101, end: 20040501
  2. HYDROCORTISONE [Concomitant]

REACTIONS (6)
  - APHASIA [None]
  - ASTHENIA [None]
  - CEREBROVASCULAR ACCIDENT [None]
  - EYE DISORDER [None]
  - MEMORY IMPAIRMENT [None]
  - WEIGHT INCREASED [None]
